FAERS Safety Report 25949646 (Version 1)
Quarter: 2025Q4

REPORT INFORMATION
  Report Type: Spontaneous
  Country: EU (occurrence: EU)
  Receive Date: 20251022
  Receipt Date: 20251022
  Transmission Date: 20260119
  Serious: Yes (Other)
  Sender: PFIZER
  Company Number: None

PATIENT
  Age: 41 Year
  Sex: Female
  Weight: 67 kg

DRUGS (1)
  1. CLINDAMYCIN HYDROCHLORIDE [Suspect]
     Active Substance: CLINDAMYCIN HYDROCHLORIDE
     Indication: Skin infection
     Dosage: TAKE 3 TABLETS DAILY FOR 7 CONSECUTIVE DAYS
     Dates: start: 20250927, end: 20251003

REACTIONS (4)
  - Oropharyngeal blistering [Recovering/Resolving]
  - Mouth ulceration [Recovering/Resolving]
  - Oral mucosal blistering [Recovering/Resolving]
  - Pharyngeal ulceration [Recovering/Resolving]

NARRATIVE: CASE EVENT DATE: 20250929
